FAERS Safety Report 4834790-0 (Version None)
Quarter: 2005Q4

REPORT INFORMATION
  Report Type: 
  Country: None (occurrence: None)
  Receive Date: 20051115
  Receipt Date: 20051104
  Transmission Date: 20060501
  Serious: Yes (Hospitalization, Other)
  Sender: FDA-Public Use
  Company Number: KII-2005-0019472

PATIENT
  Age: 32 Year
  Sex: Female

DRUGS (2)
  1. HYDROMORPHONE HCL [Suspect]
     Dosage: ORAL
     Route: 048
  2. QUETIAPINE (QUETIAPINE) [Suspect]
     Dosage: ORAL
     Route: 048

REACTIONS (4)
  - AREFLEXIA [None]
  - BACK PAIN [None]
  - COMA [None]
  - RESPIRATORY RATE DECREASED [None]
